FAERS Safety Report 25831275 (Version 2)
Quarter: 2025Q3

REPORT INFORMATION
  Report Type: Spontaneous
  Country: US (occurrence: US)
  Receive Date: 20250922
  Receipt Date: 20250924
  Transmission Date: 20251021
  Serious: No
  Sender: SANOFI AVENTIS
  Company Number: US-SA-2025SA278545

PATIENT
  Age: 70 Year
  Sex: Female

DRUGS (25)
  1. DUPIXENT [Suspect]
     Active Substance: DUPILUMAB
     Indication: Dermatitis atopic
     Dosage: 300 MG, QOW
     Route: 058
     Dates: start: 202508, end: 20250905
  2. CALCIUM [Concomitant]
     Active Substance: CALCIUM
  3. HYDROCODONE [Concomitant]
     Active Substance: HYDROCODONE
  4. PROLIA [Concomitant]
     Active Substance: DENOSUMAB
  5. VITAMIN E [Concomitant]
     Active Substance: .ALPHA.-TOCOPHEROL
  6. GABAPENTIN [Concomitant]
     Active Substance: GABAPENTIN
  7. HYDROCHLOROTHIAZIDE [Concomitant]
     Active Substance: HYDROCHLOROTHIAZIDE
  8. LEXAPRO [Concomitant]
     Active Substance: ESCITALOPRAM OXALATE
  9. METHOCARBAMOL [Concomitant]
     Active Substance: METHOCARBAMOL
  10. REPATHA [Concomitant]
     Active Substance: EVOLOCUMAB
  11. VALSARTAN [Concomitant]
     Active Substance: VALSARTAN
  12. WELLBUTRIN XL [Concomitant]
     Active Substance: BUPROPION HYDROCHLORIDE
  13. Methocarbamol al [Concomitant]
  14. HYDROCHLOROTHIAZIDE [Concomitant]
     Active Substance: HYDROCHLOROTHIAZIDE
  15. PROTONIX [Concomitant]
     Active Substance: PANTOPRAZOLE SODIUM
  16. HYDROCODONE [Concomitant]
     Active Substance: HYDROCODONE
  17. GABAPENTIN [Concomitant]
     Active Substance: GABAPENTIN
  18. WELLBUTRIN [Concomitant]
     Active Substance: BUPROPION HYDROCHLORIDE
  19. MAGNESIUM [Concomitant]
     Active Substance: MAGNESIUM
  20. IBUPROFEN [Concomitant]
     Active Substance: IBUPROFEN
  21. VITAMIN E [Concomitant]
     Active Substance: .ALPHA.-TOCOPHEROL
  22. MELATONIN [Concomitant]
     Active Substance: MELATONIN
  23. DICLOFENAC [Concomitant]
     Active Substance: DICLOFENAC
  24. BENADRYL [Concomitant]
     Active Substance: DIPHENHYDRAMINE HYDROCHLORIDE
  25. BUSPIRONE [Concomitant]
     Active Substance: BUSPIRONE HYDROCHLORIDE

REACTIONS (18)
  - Depression [Not Recovered/Not Resolved]
  - Asthenia [Recovering/Resolving]
  - Feeling of despair [Not Recovered/Not Resolved]
  - Inflammation [Not Recovered/Not Resolved]
  - Depressed mood [Not Recovered/Not Resolved]
  - Scratch [Not Recovered/Not Resolved]
  - Skin haemorrhage [Not Recovered/Not Resolved]
  - Pain [Not Recovered/Not Resolved]
  - Fatigue [Not Recovered/Not Resolved]
  - Illness [Not Recovered/Not Resolved]
  - Anaemia [Not Recovered/Not Resolved]
  - Decreased interest [Not Recovered/Not Resolved]
  - Initial insomnia [Not Recovered/Not Resolved]
  - Myalgia [Recovering/Resolving]
  - Gait disturbance [Recovering/Resolving]
  - Pain in extremity [Unknown]
  - Pruritus [Not Recovered/Not Resolved]
  - Product dose omission in error [Unknown]

NARRATIVE: CASE EVENT DATE: 20250101
